FAERS Safety Report 6863331-1 (Version None)
Quarter: 2010Q3

REPORT INFORMATION
  Report Type: 
  Country: None (occurrence: None)
  Receive Date: 20100721
  Receipt Date: 20100712
  Transmission Date: 20110219
  Serious: Yes (Disabling)
  Sender: FDA-Public Use
  Company Number: JP-JNJFOC-20100704494

PATIENT
  Age: 79 Year
  Sex: Male

DRUGS (6)
  1. RISPERDAL [Suspect]
     Indication: PRODUCT USED FOR UNKNOWN INDICATION
     Route: 048
  2. PLETAL [Concomitant]
     Route: 048
  3. MEILAX [Concomitant]
     Route: 048
  4. TRIHEXYPHENIDYL HCL [Concomitant]
     Route: 048
  5. URIEF [Concomitant]
     Route: 048
  6. UBRETID [Concomitant]
     Route: 065

REACTIONS (3)
  - ABASIA [None]
  - MUSCULAR WEAKNESS [None]
  - TREMOR [None]
